FAERS Safety Report 11074182 (Version 1)
Quarter: 2015Q2

REPORT INFORMATION
  Report Type: Spontaneous
  Country: US (occurrence: US)
  Receive Date: 20150429
  Receipt Date: 20150429
  Transmission Date: 20150821
  Serious: No
  Sender: FDA-Public Use
  Company Number: US-ELI_LILLY_AND_COMPANY-US201504000683

PATIENT
  Sex: Female

DRUGS (9)
  1. VYVANSE [Concomitant]
     Active Substance: LISDEXAMFETAMINE DIMESYLATE
  2. HUMATROPE [Suspect]
     Active Substance: SOMATROPIN
     Indication: GROWTH HORMONE DEFICIENCY
     Dosage: 2 MG, QD
     Route: 058
     Dates: start: 201501
  3. HYDROCHLOROTHIAZIDE. [Concomitant]
     Active Substance: HYDROCHLOROTHIAZIDE
  4. COENZYME Q10 [Concomitant]
     Active Substance: UBIDECARENONE
  5. KLOR-CON [Concomitant]
     Active Substance: POTASSIUM CHLORIDE
  6. AMLODIPINE BESYLATE. [Concomitant]
     Active Substance: AMLODIPINE BESYLATE
  7. FOLIC ACID. [Concomitant]
     Active Substance: FOLIC ACID
  8. HUMATROPE [Suspect]
     Active Substance: SOMATROPIN
     Dosage: 3 MG, QD
     Route: 058
     Dates: start: 20150329
  9. PRILOSEC [Concomitant]
     Active Substance: OMEPRAZOLE MAGNESIUM

REACTIONS (13)
  - Cardiovascular disorder [Unknown]
  - Fluid retention [Unknown]
  - Fatigue [Unknown]
  - Blood glucose increased [Unknown]
  - Lethargy [Unknown]
  - Immunoglobulins decreased [Unknown]
  - Injection site haemorrhage [Unknown]
  - Injection site pain [Unknown]
  - Blood pressure decreased [Unknown]
  - Headache [Unknown]
  - Disorientation [Unknown]
  - Night sweats [Unknown]
  - Flushing [Unknown]
